FAERS Safety Report 13390302 (Version 1)
Quarter: 2017Q1

REPORT INFORMATION
  Report Type: Spontaneous
  Country: CN (occurrence: CN)
  Receive Date: 20170331
  Receipt Date: 20170331
  Transmission Date: 20170429
  Serious: Yes (Other)
  Sender: FDA-Public Use
  Company Number: CN-LUPIN PHARMACEUTICALS INC.-2017-01476

PATIENT
  Age: 35 Year
  Sex: Female

DRUGS (1)
  1. MISOPROSTOL TABLET [Suspect]
     Active Substance: MISOPROSTOL
     Indication: INDUCTION OF CERVIX RIPENING
     Dosage: 1 DF, SINGLE
     Route: 067

REACTIONS (2)
  - Vaginal haemorrhage [Recovered/Resolved]
  - Haemoglobin decreased [None]
